FAERS Safety Report 24236586 (Version 4)
Quarter: 2025Q1

REPORT INFORMATION
  Report Type: Report from Study
  Country: CO (occurrence: CO)
  Receive Date: 20240822
  Receipt Date: 20250131
  Transmission Date: 20250409
  Serious: Yes (Hospitalization)
  Sender: RECORDATI
  Company Number: CO-RECORDATI-2024003358

PATIENT

DRUGS (3)
  1. SIGNIFOR [Suspect]
     Active Substance: PASIREOTIDE DIASPARTATE
     Indication: Pituitary-dependent Cushing^s syndrome
     Dosage: 0.6 MILLIGRAM, Q12H
     Route: 058
     Dates: start: 2021, end: 20240814
  2. ENALAPRIL [Concomitant]
     Active Substance: ENALAPRIL
     Indication: Hypertension
     Dosage: 20 MG, QD (EVERY 24 HOURS)
     Route: 048
  3. ROSUVASTATIN [Concomitant]
     Active Substance: ROSUVASTATIN
     Indication: Dyslipidaemia
     Dosage: 40 MG, QD (EVERY 24 HOURS)

REACTIONS (11)
  - Mobility decreased [Recovering/Resolving]
  - Nephrolithiasis [Recovered/Resolved]
  - Urinary tract infection [Recovered/Resolved]
  - Renal colic [Recovered/Resolved]
  - Ureterolithiasis [Recovered/Resolved]
  - Oedema [Recovered/Resolved]
  - Dysuria [Recovering/Resolving]
  - Paraesthesia [Recovered/Resolved]
  - Pain in extremity [Recovering/Resolving]
  - Peripheral swelling [Recovering/Resolving]
  - Malaise [Unknown]

NARRATIVE: CASE EVENT DATE: 20231122
